FAERS Safety Report 11814727 (Version 1)
Quarter: 2015Q4

REPORT INFORMATION
  Report Type: Spontaneous
  Country: PT (occurrence: PT)
  Receive Date: 20151209
  Receipt Date: 20151209
  Transmission Date: 20160305
  Serious: Yes (Death, Hospitalization)
  Sender: FDA-Public Use
  Company Number: PT-TEVA-616170ISR

PATIENT
  Age: 65 Year
  Sex: Female

DRUGS (3)
  1. PACLITAXEL. [Suspect]
     Active Substance: PACLITAXEL
     Indication: OVARIAN CANCER
  2. GEMCITABINE [Suspect]
     Active Substance: GEMCITABINE\GEMCITABINE HYDROCHLORIDE
     Indication: OVARIAN CANCER
  3. DOXORUBICIN [Suspect]
     Active Substance: DOXORUBICIN
     Indication: OVARIAN CANCER
     Dosage: PEGYLATED LIPOSOMAL DOXORUBICIN

REACTIONS (4)
  - Toxicity to various agents [Unknown]
  - Haematotoxicity [Fatal]
  - Palmar-plantar erythrodysaesthesia syndrome [Unknown]
  - Gastrointestinal toxicity [Unknown]
